FAERS Safety Report 6419135-7 (Version None)
Quarter: 2009Q4

REPORT INFORMATION
  Report Type: 
  Country: None (occurrence: None)
  Receive Date: 20091027
  Receipt Date: 20091012
  Transmission Date: 20100525
  Serious: Yes (Disabling)
  Sender: FDA-Public Use
  Company Number: IDA-00274

PATIENT
  Age: 81 Year
  Sex: Female

DRUGS (6)
  1. INDERAL [Suspect]
     Indication: TREMOR
     Dosage: 40 MG DAILY, ORAL FORMULATION: TABLET
     Route: 048
     Dates: start: 20090827, end: 20090827
  2. TRIMETAZIDINE DIHYDROCHLORIDE (TRIMETAZIDINE HYDROCHLORIDE) [Concomitant]
  3. (CILAZAPRIL) [Concomitant]
  4. (ACETYLSALICYLIC ACID) [Concomitant]
  5. SIMVASTATIN [Concomitant]
  6. MAGNESIUM+VITAMINS NOS (MAGNESIUM, VITAMINS NOS) [Concomitant]

REACTIONS (5)
  - ASTHENIA [None]
  - COLD SWEAT [None]
  - MALAISE [None]
  - NAUSEA [None]
  - TACHYCARDIA [None]
